FAERS Safety Report 5486964-6 (Version None)
Quarter: 2007Q4

REPORT INFORMATION
  Report Type: 
  Country: None (occurrence: None)
  Receive Date: 20071012
  Receipt Date: 20071012
  Transmission Date: 20080405
  Serious: Yes (Disabling, Other)
  Sender: FDA-Public Use
  Company Number: None

PATIENT
  Age: 47 Year
  Sex: Female
  Weight: 68.0396 kg

DRUGS (3)
  1. ACNEFREE CLEANSER, TONER, LOTION BENZYL PEROXIDE 2.5% AND 3.7% UNIVERI [Suspect]
     Indication: ACNE
     Dosage: ONE APPLICATION 1 TIME TOP
     Route: 061
     Dates: start: 20071009, end: 20071009
  2. ACNEFREE CLEANSER, TONER, LOTION BENZYL PEROXIDE 2.5% AND 3.7% UNIVERI [Suspect]
  3. ACNEFREE CLEANSER, TONER, LOTION BENZYL PEROXIDE 2.5% AND 3.7% UNIVERI [Suspect]

REACTIONS (5)
  - ERYTHEMA [None]
  - PRURITUS [None]
  - SWELLING [None]
  - THERMAL BURN [None]
  - THROAT TIGHTNESS [None]
